FAERS Safety Report 5373628-2 (Version None)
Quarter: 2007Q2

REPORT INFORMATION
  Report Type: 
  Country: None (occurrence: None)
  Receive Date: 20070628
  Receipt Date: 20070620
  Transmission Date: 20071010
  Serious: Yes (Hospitalization, Other)
  Sender: FDA-Public Use
  Company Number: PHEH2007US09106

PATIENT
  Age: 17 Year
  Sex: Female

DRUGS (1)
  1. EXJADE [Suspect]
     Indication: IRON OVERLOAD
     Dosage: 1 G, QD
     Route: 048
     Dates: start: 20060729

REACTIONS (2)
  - STAPHYLOCOCCAL INFECTION [None]
  - VOMITING [None]
